FAERS Safety Report 5657549-3 (Version None)
Quarter: 2008Q1

REPORT INFORMATION
  Report Type: 
  Country: None (occurrence: None)
  Receive Date: 20080310
  Receipt Date: 20080226
  Transmission Date: 20080703
  Serious: Yes (Other)
  Sender: FDA-Public Use
  Company Number: PHEH2008US01595

PATIENT
  Age: 78 Year
  Sex: Female

DRUGS (1)
  1. FEMARA [Suspect]
     Indication: BREAST CANCER
     Dates: start: 20080109

REACTIONS (14)
  - AGITATION [None]
  - APPETITE DISORDER [None]
  - ARTHRALGIA [None]
  - BONE PAIN [None]
  - DYSARTHRIA [None]
  - HALLUCINATION [None]
  - HEADACHE [None]
  - INSOMNIA [None]
  - JOINT SWELLING [None]
  - MYALGIA [None]
  - NAUSEA [None]
  - OEDEMA PERIPHERAL [None]
  - PARANOIA [None]
  - VISUAL DISTURBANCE [None]
